FAERS Safety Report 22321078 (Version 4)
Quarter: 2023Q2

REPORT INFORMATION
  Report Type: Report from Study
  Country: CN (occurrence: CN)
  Receive Date: 20230515
  Receipt Date: 20230621
  Transmission Date: 20230722
  Serious: Yes (Other)
  Sender: FDA-Public Use
  Company Number: CN-FOSUNKITE-FOSUNKITE-20230145

PATIENT
  Age: 56 Year
  Sex: Female

DRUGS (6)
  1. AXICABTAGENE CILOLEUCEL [Suspect]
     Active Substance: AXICABTAGENE CILOLEUCEL
     Indication: Non-Hodgkin^s lymphoma
     Dosage: 1.1 X 10^8 CELLS (NUMBER OF CAR-T CELLS)
     Route: 042
     Dates: start: 20221230, end: 20221230
  2. FLUDARABINE PHOSPHATE [Suspect]
     Active Substance: FLUDARABINE PHOSPHATE
     Indication: Lymphodepletion
     Dosage: 48.3 MG
     Route: 041
     Dates: start: 20221225, end: 20221227
  3. CYCLOPHOSPHAMIDE [Suspect]
     Active Substance: CYCLOPHOSPHAMIDE
     Indication: Lymphodepletion
     Dosage: 805 MG
     Route: 041
     Dates: start: 20221225, end: 20221227
  4. ZANUBRUTINIB [Concomitant]
     Active Substance: ZANUBRUTINIB
     Indication: Non-Hodgkin^s lymphoma
     Dosage: UNK
     Route: 048
     Dates: start: 20221219, end: 20221230
  5. ZANUBRUTINIB [Concomitant]
     Active Substance: ZANUBRUTINIB
     Dosage: UNK
     Route: 048
     Dates: start: 20221231
  6. CYCLOPHOSPHAMIDE\FLUDARABINE [Concomitant]
     Active Substance: CYCLOPHOSPHAMIDE\FLUDARABINE
     Indication: Non-Hodgkin^s lymphoma
     Dosage: UNK
     Dates: start: 20221226

REACTIONS (29)
  - Escherichia infection [Recovered/Resolved]
  - Keratitis [Not Recovered/Not Resolved]
  - Cytokine release syndrome [Recovered/Resolved]
  - Hypokalaemia [Not Recovered/Not Resolved]
  - Pneumonia [Not Recovered/Not Resolved]
  - Hypoxia [Recovered/Resolved]
  - White blood cell count decreased [Recovered/Resolved]
  - Neutrophil count decreased [Recovered/Resolved]
  - Conjunctival hyperaemia [Recovered/Resolved]
  - Anaemia [Not Recovered/Not Resolved]
  - Platelet count decreased [Not Recovered/Not Resolved]
  - Aspartate aminotransferase increased [Recovered/Resolved]
  - Hypoalbuminaemia [Not Recovered/Not Resolved]
  - Hypophosphataemia [Not Recovered/Not Resolved]
  - C-reactive protein increased [Not Recovered/Not Resolved]
  - Lymphocyte count decreased [Not Recovered/Not Resolved]
  - Skin lesion [Recovered/Resolved]
  - Scab [Recovered/Resolved]
  - Asthenia [Recovered/Resolved]
  - Dizziness [Recovered/Resolved]
  - Pruritus [Recovered/Resolved]
  - Hypoproteinaemia [Recovered/Resolved]
  - Hypomagnesaemia [Recovered/Resolved]
  - Blood immunoglobulin G decreased [Recovered/Resolved]
  - Cytokine increased [Not Recovered/Not Resolved]
  - Candida infection [Recovered/Resolved]
  - Cough [Not Recovered/Not Resolved]
  - Vision blurred [Recovered/Resolved]
  - Productive cough [Not Recovered/Not Resolved]

NARRATIVE: CASE EVENT DATE: 20230102
